FAERS Safety Report 6186742-9 (Version None)
Quarter: 2009Q2

REPORT INFORMATION
  Report Type: 
  Country: None (occurrence: None)
  Receive Date: 20090508
  Receipt Date: 20090508
  Transmission Date: 20091009
  Serious: Yes (Hospitalization)
  Sender: FDA-Public Use
  Company Number: None

PATIENT
  Sex: Female
  Weight: 88.1 kg

DRUGS (2)
  1. METHOTREXATE [Suspect]
     Dosage: 6650 MG
  2. TEMOZOLOMIDE [Suspect]
     Dosage: 1000 MG

REACTIONS (10)
  - DIARRHOEA [None]
  - EOSINOPHIL COUNT DECREASED [None]
  - FATIGUE [None]
  - HAEMATURIA [None]
  - NEUTROPENIA [None]
  - PANCYTOPENIA [None]
  - PYREXIA [None]
  - RASH ERYTHEMATOUS [None]
  - RASH GENERALISED [None]
  - STOMATITIS [None]
